FAERS Safety Report 9209603 (Version 1)
Quarter: 2013Q2

REPORT INFORMATION
  Report Type: Spontaneous
  Country: CL (occurrence: CL)
  Receive Date: 20130404
  Receipt Date: 20130404
  Transmission Date: 20140414
  Serious: Yes (Hospitalization)
  Sender: FDA-Public Use
  Company Number: CL-BRISTOL-MYERS SQUIBB COMPANY-18719435

PATIENT
  Sex: Female

DRUGS (3)
  1. ORENCIA [Suspect]
     Indication: RHEUMATOID ARTHRITIS
     Dates: start: 201205
  2. KETOROLAC [Concomitant]
  3. CYCLOBENZAPRINE [Concomitant]

REACTIONS (2)
  - Chondroma [Unknown]
  - Meniscus injury [Unknown]
